FAERS Safety Report 8708487 (Version 3)
Quarter: 2013Q2

REPORT INFORMATION
  Report Type: Spontaneous
  Country: FR (occurrence: FR)
  Receive Date: 20120806
  Receipt Date: 20130422
  Transmission Date: 20140414
  Serious: Yes (Hospitalization, Other)
  Sender: FDA-Public Use
  Company Number: FR-BRISTOL-MYERS SQUIBB COMPANY-16832834

PATIENT
  Age: 47 Year
  Sex: Female
  Weight: 44 kg

DRUGS (5)
  1. LYSODREN [Suspect]
     Indication: ADRENOCORTICAL CARCINOMA
     Route: 048
     Dates: start: 201109, end: 20120510
  2. HYDROCORTISONE [Suspect]
     Route: 048
     Dates: start: 201109
  3. LUTENYL [Concomitant]
     Route: 048
     Dates: start: 201202
  4. AMLOR [Concomitant]
     Route: 048
     Dates: start: 201205
  5. SPECIAFOLDINE [Concomitant]
     Route: 048

REACTIONS (4)
  - Gamma-glutamyltransferase increased [Recovering/Resolving]
  - Peliosis hepatis [Unknown]
  - Hepatomegaly [None]
  - Toxicity to various agents [None]
